FAERS Safety Report 7994008-7 (Version None)
Quarter: 2011Q4

REPORT INFORMATION
  Report Type: 
  Country: None (occurrence: None)
  Receive Date: 20111220
  Receipt Date: 20111208
  Transmission Date: 20120403
  Serious: Yes (Hospitalization)
  Sender: FDA-Public Use
  Company Number: FR-ELI_LILLY_AND_COMPANY-FR201112003446

PATIENT
  Age: 26 Year
  Sex: Male

DRUGS (4)
  1. OLANZAPINE [Suspect]
     Indication: SCHIZOPHRENIA
     Dosage: 300 MG, UNK
     Route: 030
  2. VALIUM [Concomitant]
     Indication: SCHIZOPHRENIA
     Dosage: UNK
  3. OLANZAPINE [Suspect]
     Indication: SCHIZOPHRENIA
     Dosage: 20 MG, QD
     Route: 048
  4. DEPAKOTE [Concomitant]
     Indication: SCHIZOPHRENIA
     Dosage: UNK

REACTIONS (10)
  - EYE MOVEMENT DISORDER [None]
  - SCHIZOPHRENIA [None]
  - AMNESIA [None]
  - SPEECH DISORDER [None]
  - SEDATION [None]
  - URINARY INCONTINENCE [None]
  - PSYCHOMOTOR HYPERACTIVITY [None]
  - MEDICATION ERROR [None]
  - CONFUSIONAL STATE [None]
  - AGITATION [None]
